FAERS Safety Report 7576967-X (Version None)
Quarter: 2011Q2

REPORT INFORMATION
  Report Type: 
  Country: None (occurrence: None)
  Receive Date: 20110628
  Receipt Date: 20100914
  Transmission Date: 20111010
  Serious: Yes (Other)
  Sender: FDA-Public Use
  Company Number: US-BAYER-201022503NA

PATIENT
  Age: 22 Year
  Sex: Female
  Weight: 51 kg

DRUGS (14)
  1. PREDNISOLONE [Concomitant]
  2. YAZ [Suspect]
     Indication: CONTRACEPTION
  3. YASMIN [Suspect]
     Indication: CONTRACEPTION
     Dates: start: 20030101, end: 20090101
  4. ALLEGRA D 24 HOUR [Concomitant]
  5. YAZ [Suspect]
     Indication: ACNE
     Dates: start: 20030101, end: 20090101
  6. MINOCYCLINE HCL [Concomitant]
  7. PROMETHAZINE [Concomitant]
     Dates: start: 20071230
  8. COLESTIPOL HYDROCHLORIDE [Concomitant]
     Route: 048
  9. HYDROCODONE [Concomitant]
  10. COLESTID [Concomitant]
  11. YASMIN [Suspect]
     Indication: ACNE
  12. NSAID'S [Concomitant]
     Dates: start: 20070101
  13. EPIPEN [Concomitant]
  14. AZITHROMYCIN [Concomitant]

REACTIONS (8)
  - PAIN [None]
  - GALLBLADDER CHOLESTEROLOSIS [None]
  - BILIARY DYSKINESIA [None]
  - ANXIETY [None]
  - CHOLECYSTITIS CHRONIC [None]
  - ABDOMINAL PAIN UPPER [None]
  - NAUSEA [None]
  - CHOLELITHIASIS [None]
